FAERS Safety Report 23915919 (Version 1)
Quarter: 2024Q2

REPORT INFORMATION
  Report Type: Spontaneous
  Country: US (occurrence: None)
  Receive Date: 20240528
  Receipt Date: 20240528
  Transmission Date: 20240716
  Serious: Yes (Life-Threatening, Disabling)
  Sender: FDA-Public Use
  Company Number: None

PATIENT
  Age: 73 Year
  Sex: Female
  Weight: 99 kg

DRUGS (8)
  1. VENOFER [Suspect]
     Active Substance: IRON SUCROSE
     Indication: Malabsorption
     Dosage: OTHER QUANTITY : 1 IV;?OTHER FREQUENCY : WHEN LAB INDICATED;?
     Route: 042
     Dates: end: 20231109
  2. Pantoprazoloe Sodium [Concomitant]
  3. CLONAZEPAM [Concomitant]
  4. LEVOTHYROXINE SODIUM [Concomitant]
  5. Compound + Finasteride/minoxidil/biotin [Concomitant]
  6. BENADRYL [Concomitant]
     Active Substance: DIPHENHYDRAMINE HYDROCHLORIDE
  7. ZYRTEC [Concomitant]
     Active Substance: CETIRIZINE HYDROCHLORIDE
  8. TYLENOL [Concomitant]

REACTIONS (7)
  - Syncope [None]
  - Depressed level of consciousness [None]
  - Nausea [None]
  - Anal incontinence [None]
  - Joint swelling [None]
  - Erythema [None]
  - Infusion related reaction [None]

NARRATIVE: CASE EVENT DATE: 20231109
